FAERS Safety Report 25802574 (Version 1)
Quarter: 2025Q3

REPORT INFORMATION
  Report Type: Spontaneous
  Country: EU (occurrence: EU)
  Receive Date: 20250915
  Receipt Date: 20250915
  Transmission Date: 20251021
  Serious: Yes (Hospitalization, Other)
  Sender: GLAND PHARMA LTD
  Company Number: EU-GLANDPHARMA-NL-2025GLNLIT01825

PATIENT
  Age: 35 Year
  Sex: Female

DRUGS (1)
  1. CISPLATIN [Suspect]
     Active Substance: CISPLATIN
     Indication: Squamous cell carcinoma of the cervix
     Route: 065

REACTIONS (7)
  - Cardiac arrest [Recovered/Resolved]
  - Pulmonary embolism [Recovered/Resolved]
  - Intra-abdominal haemorrhage [Recovered/Resolved]
  - Hypovolaemic shock [Recovered/Resolved]
  - Abdominal compartment syndrome [Recovered/Resolved]
  - Haemorrhage [Recovered/Resolved]
  - Product use in unapproved indication [Unknown]
